FAERS Safety Report 7854166-1 (Version None)
Quarter: 2011Q4

REPORT INFORMATION
  Report Type: 
  Country: None (occurrence: None)
  Receive Date: 20111026
  Receipt Date: 20110104
  Transmission Date: 20120403
  Serious: No
  Sender: FDA-Public Use
  Company Number: US-BRISTOL-MYERS SQUIBB COMPANY-15471055

PATIENT

DRUGS (2)
  1. BUSPAR [Suspect]
  2. ABILIFY [Suspect]

REACTIONS (3)
  - NAUSEA [None]
  - ARTHRALGIA [None]
  - PAIN IN EXTREMITY [None]
